FAERS Safety Report 8438113-X (Version None)
Quarter: 2012Q2

REPORT INFORMATION
  Report Type: 
  Country: None (occurrence: None)
  Receive Date: 20120614
  Receipt Date: 20120605
  Transmission Date: 20120825
  Serious: Yes (Other)
  Sender: FDA-Public Use
  Company Number: US-ABBOTT-12P-163-0943210-00

PATIENT
  Sex: Female
  Weight: 95.34 kg

DRUGS (9)
  1. VITAMIN D [Concomitant]
     Indication: VITAMIN SUPPLEMENTATION
  2. DRISDOL [Concomitant]
     Indication: BONE DISORDER
  3. LORTAB [Concomitant]
     Indication: PAIN
  4. METHOTREXATE [Concomitant]
     Indication: RHEUMATOID ARTHRITIS
  5. OXYCONTIN [Concomitant]
     Indication: PAIN
  6. HUMIRA [Suspect]
     Indication: RHEUMATOID ARTHRITIS
     Dates: start: 20111201
  7. PREVACID [Concomitant]
     Indication: GASTRIC DISORDER
  8. METHYLPREDNISOLONE [Concomitant]
     Indication: RHEUMATOID ARTHRITIS
  9. ARTHROTEC [Concomitant]
     Indication: RHEUMATOID ARTHRITIS

REACTIONS (4)
  - OSTEOARTHRITIS [None]
  - ARTHROPATHY [None]
  - DEVICE MALFUNCTION [None]
  - JOINT CREPITATION [None]
